FAERS Safety Report 12672151 (Version 3)
Quarter: 2017Q3

REPORT INFORMATION
  Report Type: Spontaneous
  Country: US (occurrence: US)
  Receive Date: 20160822
  Receipt Date: 20170901
  Transmission Date: 20171127
  Serious: No
  Sender: FDA-Public Use
  Company Number: US-PFIZER INC-2016394617

PATIENT
  Age: 64 Year

DRUGS (1)
  1. LIDOCAINE HCL [Suspect]
     Active Substance: LIDOCAINE HYDROCHLORIDE
     Indication: FIBROMYALGIA
     Route: 042

REACTIONS (3)
  - Dizziness [Unknown]
  - Incorrect route of drug administration [Unknown]
  - Drug ineffective [Unknown]
